FAERS Safety Report 5051738-7 (Version None)
Quarter: 2006Q3

REPORT INFORMATION
  Report Type: 
  Country: None (occurrence: None)
  Receive Date: 20060712
  Receipt Date: 20060712
  Transmission Date: 20061208
  Serious: Yes (Death)
  Sender: FDA-Public Use
  Company Number: None

PATIENT
  Age: 78 Year
  Sex: Male
  Weight: 66.2252 kg

DRUGS (4)
  1. PEXEVA [Suspect]
     Dosage: ONCE EVERY 2 WEEKS
  2. NORVASC [Suspect]
  3. PROMETHAZINE [Suspect]
  4. ZYPREXA [Suspect]

REACTIONS (1)
  - COMPLETED SUICIDE [None]
